FAERS Safety Report 4620930-5 (Version None)
Quarter: 2005Q1

REPORT INFORMATION
  Report Type: 
  Country: None (occurrence: None)
  Receive Date: 20050328
  Receipt Date: 20050318
  Transmission Date: 20050727
  Serious: Yes (Hospitalization)
  Sender: FDA-Public Use
  Company Number: GB-ABBOTT-05P-167-0294600-00

PATIENT
  Age: 22 Year
  Sex: Female

DRUGS (6)
  1. DEPAKOTE [Suspect]
     Indication: SCHIZOAFFECTIVE DISORDER
     Route: 048
  2. DEPAKOTE [Suspect]
     Indication: SUICIDE ATTEMPT
     Route: 048
     Dates: start: 20040831, end: 20040831
  3. PARACETAMOL [Suspect]
     Indication: SUICIDE ATTEMPT
     Route: 048
     Dates: start: 20040823, end: 20040823
  4. PARACETAMOL [Suspect]
     Route: 048
     Dates: start: 20040831, end: 20040831
  5. FLUOXETINE HCL [Suspect]
     Indication: SUICIDE ATTEMPT
     Route: 048
     Dates: start: 20040831, end: 20040831
  6. ARIPIPRAZOLE [Suspect]
     Indication: SCHIZOAFFECTIVE DISORDER
     Route: 048
     Dates: start: 20040826

REACTIONS (5)
  - DEPRESSION [None]
  - INTENTIONAL MISUSE [None]
  - INTERNATIONAL NORMALISED RATIO INCREASED [None]
  - PSYCHOTIC DISORDER [None]
  - SUICIDE ATTEMPT [None]
